FAERS Safety Report 16422859 (Version 3)
Quarter: 2019Q3

REPORT INFORMATION
  Report Type: Report from Study
  Country: US (occurrence: US)
  Receive Date: 20190612
  Receipt Date: 20190705
  Transmission Date: 20191004
  Serious: Yes (Death, Hospitalization, Other)
  Sender: FDA-Public Use
  Company Number: US-EXELIXIS-XL18419021760

PATIENT
  Age: 77 Year
  Sex: Male
  Weight: 86.55 kg

DRUGS (1)
  1. XL184 [Suspect]
     Active Substance: CABOZANTINIB
     Indication: PAPILLARY RENAL CELL CARCINOMA
     Dosage: 60 MG, QD
     Route: 048
     Dates: start: 20190418

REACTIONS (3)
  - Cardiac arrest [Fatal]
  - Anaemia [Unknown]
  - Embolism [Fatal]

NARRATIVE: CASE EVENT DATE: 20190520
